FAERS Safety Report 4312802-0 (Version None)
Quarter: 2004Q1

REPORT INFORMATION
  Report Type: 
  Country: None (occurrence: None)
  Receive Date: 20040304
  Receipt Date: 20040217
  Transmission Date: 20041129
  Serious: Yes (Hospitalization, Other)
  Sender: FDA-Public Use
  Company Number: DSA_24010_2004

PATIENT
  Age: 36 Year
  Sex: Male

DRUGS (4)
  1. ATIVAN [Suspect]
     Dates: start: 20040121, end: 20040121
  2. CLOZARIL [Suspect]
     Indication: SCHIZOPHRENIA
     Dosage: 5000 MG ONCE PO
     Route: 048
     Dates: start: 20040121, end: 20040121
  3. CLOZARIL [Suspect]
     Indication: SCHIZOPHRENIA
     Dosage: 500 MG ONCE PO
     Route: 048
     Dates: start: 20040121, end: 20040121
  4. TEMAZEPAM [Suspect]
     Dates: start: 20040121, end: 20040121

REACTIONS (3)
  - CIRCULATORY COLLAPSE [None]
  - CONFUSIONAL STATE [None]
  - OVERDOSE [None]
